FAERS Safety Report 11384254 (Version 2)
Quarter: 2015Q3

REPORT INFORMATION
  Report Type: Spontaneous
  Country: US (occurrence: US)
  Receive Date: 20150811
  Receipt Date: 20150831
  Transmission Date: 20151125
  Serious: No
  Sender: FDA-Public Use
  Company Number: US-ELI_LILLY_AND_COMPANY-US201010001729

PATIENT
  Age: 62 Year
  Sex: Male

DRUGS (2)
  1. CYMBALTA [Suspect]
     Active Substance: DULOXETINE HYDROCHLORIDE
     Indication: DEPRESSION
     Dosage: 40 MG, DAILY (1/D)
  2. CIALIS [Suspect]
     Active Substance: TADALAFIL
     Indication: LIBIDO DECREASED

REACTIONS (2)
  - Off label use [Unknown]
  - Libido decreased [Not Recovered/Not Resolved]
